FAERS Safety Report 21443296 (Version 1)
Quarter: 2022Q4

REPORT INFORMATION
  Report Type: Spontaneous
  Country: US (occurrence: US)
  Receive Date: 20221012
  Receipt Date: 20221012
  Transmission Date: 20230112
  Serious: No
  Sender: FDA-Public Use
  Company Number: US-ABBVIE-4146463

PATIENT
  Sex: Male
  Weight: 63.502 kg

DRUGS (5)
  1. DUOPA [Suspect]
     Active Substance: CARBIDOPA\LEVODOPA
     Indication: Product used for unknown indication
     Route: 050
     Dates: start: 20190801
  2. DUOPA [Suspect]
     Active Substance: CARBIDOPA\LEVODOPA
  3. LORAZEPAM [Concomitant]
     Active Substance: LORAZEPAM
     Indication: Dystonia
  4. BACLOFEN [Concomitant]
     Active Substance: BACLOFEN
     Indication: Product used for unknown indication
  5. BENADRYL [Concomitant]
     Active Substance: DIPHENHYDRAMINE HYDROCHLORIDE
     Indication: Dystonia

REACTIONS (6)
  - Hypersomnia [Not Recovered/Not Resolved]
  - Dysstasia [Not Recovered/Not Resolved]
  - Device occlusion [Recovered/Resolved]
  - Parkinsonism [Recovered/Resolved with Sequelae]
  - Gait disturbance [Not Recovered/Not Resolved]
  - Dysphagia [Not Recovered/Not Resolved]

NARRATIVE: CASE EVENT DATE: 20210101
